FAERS Safety Report 13582849 (Version 3)
Quarter: 2017Q3

REPORT INFORMATION
  Report Type: Spontaneous
  Country: US (occurrence: US)
  Receive Date: 20170525
  Receipt Date: 20170719
  Transmission Date: 20171127
  Serious: Yes (Other)
  Sender: FDA-Public Use
  Company Number: US-009507513-1705USA010580

PATIENT
  Age: 19 Year
  Sex: Female

DRUGS (1)
  1. ETONOGESTREL IMPLANT- UNKNOWN [Suspect]
     Active Substance: ETONOGESTREL
     Dosage: 1 DF, UNK; INSERTED IN HER LEFT ARM
     Route: 059
     Dates: start: 201304

REACTIONS (4)
  - Unintended pregnancy [Unknown]
  - Incorrect drug administration duration [Unknown]
  - Pregnancy with implant contraceptive [Unknown]
  - Complication associated with device [Unknown]

NARRATIVE: CASE EVENT DATE: 2016
